FAERS Safety Report 16810546 (Version 1)
Quarter: 2019Q3

REPORT INFORMATION
  Report Type: Spontaneous
  Country: DE (occurrence: DE)
  Receive Date: 20190916
  Receipt Date: 20190916
  Transmission Date: 20191005
  Serious: Yes (Hospitalization)
  Sender: FDA-Public Use
  Company Number: DE-NOVOPROD-683867

PATIENT
  Age: 14 Year
  Sex: Female
  Weight: 65 kg

DRUGS (4)
  1. NOVORAPID [Suspect]
     Active Substance: INSULIN ASPART
     Indication: TYPE 1 DIABETES MELLITUS
     Dosage: 5 IU (ABOUT 15:00 O CLOCK)
     Route: 058
  2. NOVORAPID [Suspect]
     Active Substance: INSULIN ASPART
     Dosage: UNK (NEW BATCH)
     Route: 065
  3. NOVORAPID [Suspect]
     Active Substance: INSULIN ASPART
     Dosage: 5 IU (ABOUT 18:00 O CLOCK)
     Route: 058
  4. NOVORAPID [Suspect]
     Active Substance: INSULIN ASPART
     Dosage: 4 IU (ABOUT  11:00 O CLOCK)
     Route: 058

REACTIONS (7)
  - Hyperglycaemia [Recovered/Resolved]
  - Dehydration [Recovered/Resolved]
  - Product quality issue [Unknown]
  - Therapeutic product effect decreased [Unknown]
  - Hypoglycaemia [Recovered/Resolved]
  - Delusion [Recovered/Resolved]
  - Metabolic acidosis [Recovered/Resolved]

NARRATIVE: CASE EVENT DATE: 20190811
